FAERS Safety Report 8276075-9 (Version None)
Quarter: 2012Q2

REPORT INFORMATION
  Report Type: 
  Country: None (occurrence: None)
  Receive Date: 20120412
  Receipt Date: 20120329
  Transmission Date: 20120825
  Serious: Yes (Hospitalization)
  Sender: FDA-Public Use
  Company Number: IL-CELGENEUS-082-50794-12040013

PATIENT
  Sex: Female

DRUGS (4)
  1. IKAPRESS [Concomitant]
     Route: 065
  2. RYTHMEX [Concomitant]
     Route: 065
  3. REVLIMID [Suspect]
     Route: 048
  4. VIDAZA [Suspect]
     Route: 065

REACTIONS (1)
  - VENTRICULAR FIBRILLATION [None]
